FAERS Safety Report 7670270 (Version 7)
Quarter: 2013Q1

REPORT INFORMATION
  Report Type: Spontaneous
  Country: US (occurrence: US)
  Receive Date: 20101116
  Receipt Date: 20130227
  Transmission Date: 20140127
  Serious: Yes (Death, Disabling, Other)
  Sender: FDA-Public Use
  Company Number: US-JNJFOC-20101103083

PATIENT
  Age: 53 Year
  Sex: Female

DRUGS (14)
  1. DOXORUBICIN HYDROCHLORIDE (DOXIL) [Suspect]
     Indication: OVARIAN EPITHELIAL CANCER RECURRENT
     Route: 042
     Dates: end: 2009
  2. DOXORUBICIN HYDROCHLORIDE (DOXIL) [Suspect]
     Indication: OVARIAN EPITHELIAL CANCER RECURRENT
     Route: 042
     Dates: start: 200208
  3. DOXORUBICIN HYDROCHLORIDE (DOXIL) [Suspect]
     Indication: OVARIAN EPITHELIAL CANCER RECURRENT
     Dosage: EVERY 4-7 WEEKS FOR 7 YEARS, (CUMULATIVE DOSE 3000 MG/M2)
     Route: 042
     Dates: start: 2004, end: 20100105
  4. CARBOPLATIN [Suspect]
     Indication: OVARIAN EPITHELIAL CANCER RECURRENT
     Route: 065
     Dates: start: 2004
  5. PACLITAXEL [Suspect]
     Indication: SQUAMOUS CELL CARCINOMA
     Route: 065
  6. CETUXIMAB [Suspect]
     Indication: SQUAMOUS CELL CARCINOMA
     Route: 065
  7. RADIATION THERAPY [Suspect]
     Indication: SQUAMOUS CELL CARCINOMA
     Route: 065
  8. 5-FLUOROURACIL [Suspect]
     Indication: SQUAMOUS CELL CARCINOMA
     Route: 065
  9. CISPLATIN [Suspect]
     Indication: SQUAMOUS CELL CARCINOMA
     Route: 065
  10. METHOTREXATE [Suspect]
     Indication: SQUAMOUS CELL CARCINOMA
     Route: 065
  11. ACTONEL 35 [Concomitant]
     Route: 065
  12. CALCIUM [Concomitant]
     Route: 065
  13. MULTIVIT [Concomitant]
     Route: 065
  14. COLACE [Concomitant]
     Route: 065

REACTIONS (2)
  - Squamous cell carcinoma of the oral cavity [Fatal]
  - Squamous cell carcinoma of head and neck [Unknown]
